FAERS Safety Report 14897201 (Version 1)
Quarter: 2018Q2

REPORT INFORMATION
  Report Type: Spontaneous
  Country: US (occurrence: US)
  Receive Date: 20180427
  Receipt Date: 20180427
  Transmission Date: 20180711
  Serious: Yes (Other)
  Sender: FDA-Public Use
  Company Number: None

PATIENT
  Age: 61 Year
  Sex: Female
  Weight: 64.8 kg

DRUGS (4)
  1. PRISTIQ EXTENDED-RELEASE [Suspect]
     Active Substance: DESVENLAFAXINE SUCCINATE
     Indication: DEPRESSION
     Dosage: ?          QUANTITY:1 TABLET(S);?
     Route: 048
     Dates: start: 20180202, end: 20180423
  2. MULTIVITAMIN [Concomitant]
     Active Substance: VITAMINS
  3. VITAMIN D3 [Concomitant]
     Active Substance: CHOLECALCIFEROL
  4. METHYLFOLATE [Concomitant]
     Active Substance: LEVOMEFOLATE CALCIUM

REACTIONS (6)
  - Dizziness [None]
  - Anxiety [None]
  - Unevaluable event [None]
  - Nightmare [None]
  - Withdrawal syndrome [None]
  - Night sweats [None]

NARRATIVE: CASE EVENT DATE: 20180425
